FAERS Safety Report 9442488 (Version 1)
Quarter: 2013Q3

REPORT INFORMATION
  Report Type: Spontaneous
  Country: US (occurrence: US)
  Receive Date: 20130806
  Receipt Date: 20130806
  Transmission Date: 20140515
  Serious: No
  Sender: FDA-Public Use
  Company Number: US-009507513-1307USA017402

PATIENT
  Sex: 0

DRUGS (3)
  1. LOTRISONE [Suspect]
     Dosage: 10MG/0.643MG, 15G
  2. LOTRISONE [Suspect]
     Dosage: 10MG/0.643MG, 15G
  3. LOTRISONE [Suspect]
     Dosage: 10MG/0.643MG, 15G

REACTIONS (2)
  - Drug ineffective [Unknown]
  - Product physical issue [Unknown]
